FAERS Safety Report 21404871 (Version 1)
Quarter: 2022Q3

REPORT INFORMATION
  Report Type: Spontaneous
  Country: US (occurrence: None)
  Receive Date: 20220930
  Receipt Date: 20220930
  Transmission Date: 20221027
  Serious: No
  Sender: FDA-Public Use
  Company Number: None

PATIENT
  Age: 44 Year
  Sex: Female
  Weight: 106 kg

DRUGS (1)
  1. DICLOFENAC SODIUM [Suspect]
     Active Substance: DICLOFENAC SODIUM
     Indication: Pain
     Dosage: 50 MG BID PO?
     Route: 048
     Dates: start: 20220218, end: 20220314

REACTIONS (4)
  - Angina pectoris [None]
  - Dyspnoea [None]
  - Oesophagitis [None]
  - Gastritis [None]

NARRATIVE: CASE EVENT DATE: 20220314
